FAERS Safety Report 16361660 (Version 5)
Quarter: 2021Q4

REPORT INFORMATION
  Report Type: Spontaneous
  Country: US (occurrence: US)
  Receive Date: 20190528
  Receipt Date: 20211008
  Transmission Date: 20220303
  Serious: No
  Sender: FDA-Public Use
  Company Number: US-PFIZER INC-2017403357

PATIENT
  Age: 5 Decade
  Sex: Female
  Weight: 60.5 kg

DRUGS (2)
  1. RELPAX [Suspect]
     Active Substance: ELETRIPTAN HYDROBROMIDE
     Indication: Headache
     Dosage: 200 MG, AS NEEDED (STRENGTH: 40, 5 TAB PRN)
  2. RELPAX [Suspect]
     Active Substance: ELETRIPTAN HYDROBROMIDE
     Indication: Migraine
     Dosage: 40 MG, AS NEEDED(MAY REPEAT IN 2HRS IF UNRESOLVED.DO NOT EXCEED 80MG IN 24HRS)
     Route: 048

REACTIONS (4)
  - Peripheral swelling [Recovered/Resolved]
  - Abdominal distension [Recovered/Resolved]
  - Fluid retention [Unknown]
  - Prescribed overdose [Recovered/Resolved]
